FAERS Safety Report 9203130 (Version 1)
Quarter: 2013Q2

REPORT INFORMATION
  Report Type: Spontaneous
  Country: US (occurrence: US)
  Receive Date: 20130402
  Receipt Date: 20130402
  Transmission Date: 20140414
  Serious: No
  Sender: FDA-Public Use
  Company Number: US-009507513-1304USA000485

PATIENT
  Age: 26 Year
  Sex: Female
  Weight: 85.71 kg

DRUGS (1)
  1. IMPLANON [Suspect]
     Indication: CONTRACEPTION
     Dosage: UNK
     Route: 059
     Dates: start: 20120604

REACTIONS (2)
  - Metrorrhagia [Not Recovered/Not Resolved]
  - Depression [Not Recovered/Not Resolved]
